FAERS Safety Report 5036564-7 (Version None)
Quarter: 2006Q2

REPORT INFORMATION
  Report Type: 
  Country: None (occurrence: None)
  Receive Date: 20060623
  Receipt Date: 20060612
  Transmission Date: 20061013
  Serious: Yes (Other)
  Sender: FDA-Public Use
  Company Number: 2006025721

PATIENT
  Age: 73 Year
  Sex: Male
  Weight: 90 kg

DRUGS (11)
  1. XALATAN [Suspect]
     Indication: GLAUCOMA
     Dosage: 1 DROP ( 1 IN 1D), INTRAOCULAR
     Route: 031
     Dates: start: 20051214, end: 20051201
  2. DIGOXIN [Concomitant]
  3. CORTICOSTEROIDS (CORTICOSTEROIDS) [Concomitant]
  4. LUMIAN (BIMATOPROST) [Concomitant]
  5. TIMOFTOL (TIMOLOL MALEATE) [Concomitant]
  6. VENTOLIN [Concomitant]
  7. PULMICORT [Concomitant]
  8. SINTROM [Concomitant]
  9. FUROSEMIDE [Concomitant]
  10. SUTRIL (TORASEMIDE) [Concomitant]
  11. ENALAPRIL MALEATE [Concomitant]

REACTIONS (1)
  - HYPERTENSION [None]
